FAERS Safety Report 11998926 (Version 1)
Quarter: 2016Q1

REPORT INFORMATION
  Report Type: Report from Study
  Country: US (occurrence: US)
  Receive Date: 20160203
  Receipt Date: 20160203
  Transmission Date: 20160526
  Serious: No
  Sender: FDA-Public Use
  Company Number: US-ABBVIE-15K-163-1419172-00

PATIENT
  Age: 59 Year
  Sex: Female

DRUGS (1)
  1. HUMIRA [Suspect]
     Active Substance: ADALIMUMAB
     Indication: RHEUMATOID ARTHRITIS
     Route: 058
     Dates: start: 20150623

REACTIONS (8)
  - Pain [Recovered/Resolved]
  - Pre-existing condition improved [Unknown]
  - Weight increased [Unknown]
  - Fatigue [Recovering/Resolving]
  - Fatigue [Recovered/Resolved]
  - Myalgia [Recovering/Resolving]
  - Therapeutic response unexpected [Unknown]
  - Arthralgia [Unknown]

NARRATIVE: CASE EVENT DATE: 2015
